FAERS Safety Report 9537628 (Version 1)
Quarter: 2013Q3

REPORT INFORMATION
  Report Type: Spontaneous
  Country: CA (occurrence: CA)
  Receive Date: 20130919
  Receipt Date: 20130919
  Transmission Date: 20140515
  Serious: Yes (Hospitalization)
  Sender: FDA-Public Use
  Company Number: CA-BRISTOL-MYERS SQUIBB COMPANY-19368349

PATIENT
  Age: 51 Year
  Sex: Male

DRUGS (13)
  1. REYATAZ [Suspect]
     Indication: HIV INFECTION
  2. COMBIVIR [Concomitant]
  3. AZITHROMYCIN [Concomitant]
  4. SEPTRA [Concomitant]
  5. SALBUTAMOL [Concomitant]
  6. IPRATROPIUM [Concomitant]
  7. JANUVIA [Concomitant]
  8. METFORMIN [Concomitant]
  9. DIAMICRON [Concomitant]
  10. PANTOLOC [Concomitant]
  11. NYSTATIN [Concomitant]
     Route: 048
  12. FLUCONAZOLE [Concomitant]
  13. PRAZOSIN [Concomitant]

REACTIONS (2)
  - Respiratory distress [Unknown]
  - Pneumonia [Unknown]
